FAERS Safety Report 4512655-1 (Version None)
Quarter: 2004Q4

REPORT INFORMATION
  Report Type: 
  Country: None (occurrence: None)
  Receive Date: 20041124
  Receipt Date: 20041110
  Transmission Date: 20050328
  Serious: Yes (Other)
  Sender: FDA-Public Use
  Company Number: 2004-00693

PATIENT
  Age: 56 Year
  Sex: Female
  Weight: 51.2 kg

DRUGS (5)
  1. VELCADE [Suspect]
     Indication: MULTIPLE MYELOMA
     Dosage: SEE IMAGE
     Route: 040
     Dates: start: 20041014, end: 20041018
  2. VELCADE [Suspect]
     Indication: MULTIPLE MYELOMA
     Dosage: SEE IMAGE
     Route: 040
     Dates: start: 20041025
  3. AREDIA [Concomitant]
  4. TYLENOL (PARACEMTAMOL) [Concomitant]
  5. DOXIL [Concomitant]

REACTIONS (15)
  - ALANINE AMINOTRANSFERASE INCREASED [None]
  - ANOREXIA [None]
  - ASPARTATE AMINOTRANSFERASE INCREASED [None]
  - BILIARY DILATATION [None]
  - BLOOD ALKALINE PHOSPHATASE INCREASED [None]
  - BONE DISORDER [None]
  - COMPUTERISED TOMOGRAM ABDOMEN ABNORMAL [None]
  - DILATATION INTRAHEPATIC DUCT ACQUIRED [None]
  - DRUG INEFFECTIVE [None]
  - FATIGUE [None]
  - MALAISE [None]
  - NAUSEA [None]
  - PLEURAL EFFUSION [None]
  - RENAL CYST [None]
  - STOMACH DISCOMFORT [None]
